FAERS Safety Report 22647540 (Version 1)
Quarter: 2023Q2

REPORT INFORMATION
  Report Type: Spontaneous
  Country: RO (occurrence: RO)
  Receive Date: 20230628
  Receipt Date: 20230628
  Transmission Date: 20230722
  Serious: No
  Sender: FDA-Public Use
  Company Number: RO-TOLMAR, INC.-23RO041360

PATIENT
  Age: 66 Year
  Sex: Male

DRUGS (4)
  1. ELIGARD [Suspect]
     Active Substance: LEUPROLIDE ACETATE
     Indication: Prostate cancer
     Dosage: 22.5 MILLIGRAM, EQ84D
     Route: 058
     Dates: start: 20210715
  2. ELIGARD [Suspect]
     Active Substance: LEUPROLIDE ACETATE
     Indication: Prostate cancer
     Dosage: UNK
  3. BICALUTAMIDE [Suspect]
     Active Substance: BICALUTAMIDE
     Indication: Prostate cancer
     Dosage: 50 MILLIGRAM, QD
     Route: 048
     Dates: start: 20210715, end: 202304
  4. UNSPECIFIED INGREDIENT [Suspect]
     Active Substance: UNSPECIFIED INGREDIENT
     Indication: Prostate cancer
     Dosage: E=6MV UP TO : DT = 55GY/20FR
     Dates: start: 20220620

REACTIONS (6)
  - Prostatic specific antigen abnormal [Unknown]
  - Osteoporosis [Unknown]
  - Diarrhoea [Unknown]
  - Dysuria [Unknown]
  - Pollakiuria [Unknown]
  - Hot flush [Unknown]

NARRATIVE: CASE EVENT DATE: 20220701
